FAERS Safety Report 7877349-3 (Version None)
Quarter: 2011Q4

REPORT INFORMATION
  Report Type: 
  Country: None (occurrence: None)
  Receive Date: 20111031
  Receipt Date: 20111021
  Transmission Date: 20120403
  Serious: Yes (Other)
  Sender: FDA-Public Use
  Company Number: US-ASTRAZENECA-2011SE53529

PATIENT
  Age: 64 Year
  Sex: Female

DRUGS (4)
  1. ACCOLATE [Suspect]
     Route: 048
  2. ADVAIR DISKUS 100/50 [Concomitant]
  3. SYMBICORT [Suspect]
     Route: 055
  4. REGULAR INHALER [Concomitant]

REACTIONS (6)
  - SEASONAL ALLERGY [None]
  - DRUG DOSE OMISSION [None]
  - ABNORMAL SENSATION IN EYE [None]
  - ARTHRITIS [None]
  - DYSPNOEA [None]
  - DRUG INEFFECTIVE [None]
